FAERS Safety Report 6578117-5 (Version None)
Quarter: 2010Q1

REPORT INFORMATION
  Report Type: 
  Country: None (occurrence: None)
  Receive Date: 20100211
  Receipt Date: 20100204
  Transmission Date: 20100710
  Serious: Yes (Hospitalization)
  Sender: FDA-Public Use
  Company Number: DE-ABBOTT-10P-062-0623121-00

PATIENT
  Sex: Male

DRUGS (2)
  1. HUMIRA [Suspect]
     Indication: RHEUMATOID ARTHRITIS
     Route: 058
     Dates: start: 20091001, end: 20091101
  2. CORTISONE [Concomitant]
     Indication: RHEUMATOID ARTHRITIS
     Dosage: 15 MG DAILY

REACTIONS (16)
  - ATRIAL FIBRILLATION [None]
  - BLADDER DIVERTICULUM [None]
  - CARDIAC FAILURE [None]
  - CHROMATURIA [None]
  - DIVERTICULUM INTESTINAL [None]
  - DYSPNOEA [None]
  - EXTRASYSTOLES [None]
  - HEPATIC CYST [None]
  - OEDEMA PERIPHERAL [None]
  - PANCREATIC CYST [None]
  - RENAL CYST [None]
  - RHEUMATOID NODULE [None]
  - SPLEEN DISORDER [None]
  - TACHYARRHYTHMIA [None]
  - VERTIGO [None]
  - WEIGHT DECREASED [None]
